FAERS Safety Report 4765610-0 (Version None)
Quarter: 2005Q3

REPORT INFORMATION
  Report Type: 
  Country: None (occurrence: None)
  Receive Date: 20050906
  Receipt Date: 20050825
  Transmission Date: 20060218
  Serious: Yes (Disabling, Other)
  Sender: FDA-Public Use
  Company Number: 2005-07-1113

PATIENT
  Age: 51 Year
  Sex: Female

DRUGS (5)
  1. NASONEX [Suspect]
     Indication: NASAL POLYPS
     Dosage: 2 PUFFS QD NASAL SPRAY
     Dates: start: 20050519, end: 20050521
  2. AMOXICILLIN [Concomitant]
  3. DOXYCLINE [Concomitant]
  4. CEFUROXIME [Concomitant]
  5. ZINKOROTAT POS [Concomitant]

REACTIONS (2)
  - AGEUSIA [None]
  - ANOSMIA [None]
